FAERS Safety Report 7565290-5 (Version None)
Quarter: 2011Q2

REPORT INFORMATION
  Report Type: 
  Country: None (occurrence: None)
  Receive Date: 20110623
  Receipt Date: 20110616
  Transmission Date: 20111010
  Serious: Yes (Death)
  Sender: FDA-Public Use
  Company Number: US-ELI_LILLY_AND_COMPANY-US201102004746

PATIENT
  Sex: Female
  Weight: 78.458 kg

DRUGS (9)
  1. ZOMETA [Concomitant]
  2. LASIX [Concomitant]
  3. CALCIUM CARBONATE [Concomitant]
  4. GEMZAR [Suspect]
     Indication: BREAST CANCER METASTATIC
     Dosage: 950 MG, DAY1, 8 AND 15
     Route: 065
     Dates: start: 20100409, end: 20110118
  5. LOVENOX [Concomitant]
  6. IMODIUM [Concomitant]
  7. POTASSIUM [Concomitant]
  8. IBUPROFEN [Concomitant]
  9. HYDROCODONE [Concomitant]

REACTIONS (1)
  - NEOPLASM PROGRESSION [None]
